FAERS Safety Report 10802023 (Version 3)
Quarter: 2015Q1

REPORT INFORMATION
  Report Type: Spontaneous
  Country: DE (occurrence: DE)
  Receive Date: 20150217
  Receipt Date: 20150319
  Transmission Date: 20150721
  Serious: Yes (Other)
  Sender: FDA-Public Use
  Company Number: DE-AMGEN-DEUSP2015013956

PATIENT
  Age: 30 Year
  Sex: Female
  Weight: 70 kg

DRUGS (1)
  1. ENBREL [Suspect]
     Active Substance: ETANERCEPT
     Indication: PSORIATIC ARTHROPATHY
     Dosage: 50 MG, WEEKLY
     Route: 058
     Dates: start: 20131210, end: 2014

REACTIONS (5)
  - Postpartum depression [Recovered/Resolved]
  - Rheumatoid arthritis [Recovered/Resolved]
  - Gestational hypertension [Recovered/Resolved]
  - Premature labour [Recovered/Resolved]
  - Toxoplasma serology positive [Recovered/Resolved]
